FAERS Safety Report 24863166 (Version 1)
Quarter: 2025Q1

REPORT INFORMATION
  Report Type: Spontaneous
  Country: US (occurrence: US)
  Receive Date: 20250120
  Receipt Date: 20250120
  Transmission Date: 20250409
  Serious: No
  Sender: SANOFI AVENTIS
  Company Number: US-SA-2025SA017098

PATIENT
  Sex: Male

DRUGS (12)
  1. DUPIXENT [Suspect]
     Active Substance: DUPILUMAB
     Dosage: 300 MG, QOW
     Route: 058
     Dates: start: 20240821
  2. AMLODIPINE [Concomitant]
     Active Substance: AMLODIPINE BESYLATE
  3. ATORVASTATIN [Concomitant]
     Active Substance: ATORVASTATIN
  4. BETAMETHASONE DIPROPIONATE [Concomitant]
     Active Substance: BETAMETHASONE DIPROPIONATE
  5. CLOBETASOL [Concomitant]
     Active Substance: CLOBETASOL
  6. HYDROXYZINE HYDROCHLORIDE [Concomitant]
     Active Substance: HYDROXYZINE HYDROCHLORIDE
  7. METOPROLOL SUCCINATE [Concomitant]
     Active Substance: METOPROLOL SUCCINATE
  8. MONTELUKAST [Concomitant]
     Active Substance: MONTELUKAST
  9. PIMECROLIMUS [Concomitant]
     Active Substance: PIMECROLIMUS
  10. PREDNISONE [Concomitant]
     Active Substance: PREDNISONE
  11. TACROLIMUS [Concomitant]
     Active Substance: TACROLIMUS
  12. TRIAMCINOLONE [Concomitant]
     Active Substance: TRIAMCINOLONE

REACTIONS (4)
  - Discomfort [Unknown]
  - Sleep disorder due to a general medical condition [Unknown]
  - Infection [Unknown]
  - Rash [Unknown]
